FAERS Safety Report 20869195 (Version 1)
Quarter: 2022Q2

REPORT INFORMATION
  Report Type: Spontaneous
  Country: US (occurrence: None)
  Receive Date: 20220523
  Receipt Date: 20220523
  Transmission Date: 20220721
  Serious: Yes (Hospitalization)
  Sender: FDA-Public Use
  Company Number: None

PATIENT
  Age: 38 Year
  Sex: Male

DRUGS (3)
  1. GONADORELIN [Suspect]
     Active Substance: GONADORELIN
     Indication: Hormone replacement therapy
     Dosage: OTHER FREQUENCY : TWICE WEEKLY;?
     Route: 058
     Dates: start: 20210608
  2. Testosterone Cypionate/DHEA 200mg/10mg/ml [Concomitant]
  3. Anastrozole 0.25mg [Concomitant]

REACTIONS (3)
  - Pericarditis [None]
  - Recalled product administered [None]
  - Night sweats [None]

NARRATIVE: CASE EVENT DATE: 20220303
